FAERS Safety Report 21533504 (Version 5)
Quarter: 2023Q1

REPORT INFORMATION
  Report Type: Report from Study
  Country: US (occurrence: US)
  Receive Date: 20221101
  Receipt Date: 20230327
  Transmission Date: 20230418
  Serious: Yes (Other)
  Sender: FDA-Public Use
  Company Number: US-ABBVIE-22K-163-4536523-00

PATIENT
  Age: 75 Year
  Sex: Female

DRUGS (6)
  1. RINVOQ [Suspect]
     Active Substance: UPADACITINIB
     Indication: Rheumatoid arthritis
     Dosage: FORM STRENGTH 15 MILLIGRAMS?EXTENDED RELEASE
     Route: 048
  2. RINVOQ [Suspect]
     Active Substance: UPADACITINIB
     Indication: Rheumatoid arthritis
     Dosage: FORM STRENGTH 15 MILLIGRAMS?EXTENDED RELEASE
     Route: 048
     Dates: start: 20220724
  3. RINVOQ [Suspect]
     Active Substance: UPADACITINIB
     Indication: Rheumatoid arthritis
     Route: 048
  4. RINVOQ [Suspect]
     Active Substance: UPADACITINIB
     Indication: Rheumatoid arthritis
     Route: 048
     Dates: start: 20220621
  5. PFIZER-BIONTECH COVID-19 VACCINE [Concomitant]
     Active Substance: TOZINAMERAN
     Indication: COVID-19 immunisation
     Dosage: ONE IN ONCE
     Route: 030
  6. PFIZER-BIONTECH COVID-19 VACCINE [Concomitant]
     Active Substance: TOZINAMERAN
     Indication: COVID-19 immunisation
     Dosage: ONE IN ONCE?BOOSTER DOSE
     Route: 030

REACTIONS (28)
  - Renal failure [Unknown]
  - Feeling abnormal [Not Recovered/Not Resolved]
  - General physical health deterioration [Not Recovered/Not Resolved]
  - Arthralgia [Unknown]
  - Loss of personal independence in daily activities [Unknown]
  - Sleep apnoea syndrome [Unknown]
  - Rheumatoid arthritis [Unknown]
  - Pain [Not Recovered/Not Resolved]
  - Depression [Not Recovered/Not Resolved]
  - Bladder prolapse [Unknown]
  - Fungal infection [Unknown]
  - Hand deformity [Unknown]
  - Medical device implantation [Unknown]
  - Gait inability [Unknown]
  - Laboratory test abnormal [Recovering/Resolving]
  - Musculoskeletal stiffness [Unknown]
  - Pain [Unknown]
  - Fibromyalgia [Unknown]
  - Joint stiffness [Not Recovered/Not Resolved]
  - Infection [Unknown]
  - Musculoskeletal stiffness [Unknown]
  - Peripheral swelling [Unknown]
  - Fatigue [Unknown]
  - Asthenia [Unknown]
  - Musculoskeletal stiffness [Unknown]
  - Unevaluable event [Unknown]
  - Therapeutic product effect incomplete [Unknown]
  - Pain in extremity [Not Recovered/Not Resolved]

NARRATIVE: CASE EVENT DATE: 20220909
